FAERS Safety Report 9767394 (Version 4)
Quarter: 2014Q2

REPORT INFORMATION
  Report Type: Spontaneous
  Country: IT (occurrence: None)
  Receive Date: 20131213
  Receipt Date: 20140410
  Transmission Date: 20141212
  Serious: Yes (Hospitalization, Other)
  Sender: FDA-Public Use
  Company Number: 2013IT002876

PATIENT
  Age: 67 Year
  Sex: Female
  Weight: 67 kg

DRUGS (9)
  1. PONATINIB [Suspect]
     Indication: CHRONIC MYELOID LEUKAEMIA
     Route: 048
     Dates: start: 20130306, end: 20131204
  2. PONATINIB [Suspect]
     Route: 048
     Dates: start: 20130306, end: 20131204
  3. CONGESCOR (BISOPROLOL FUMARATE) [Concomitant]
  4. PANTOPRAZOLE (PANTOPRZOLE) [Concomitant]
  5. GAVISCON (ALGINIC ACID, ALUMINIUM HYDROXIDE GEL, DRIED, MAGNESIUM TRISILICATE, SODIUM ALGINATE, SODIUM BICARBONATE) [Concomitant]
  6. FENOFIBRATE [Concomitant]
  7. LASIX (FUROSEMIDE) [Concomitant]
  8. NITRATO DE MICONAZOL (MICONAZOLE NITRATE [Concomitant]
  9. CARDIOASPIRINA (ACETYLSALICYLIC ACID) [Concomitant]

REACTIONS (5)
  - Myocardial infarction [None]
  - Renal failure acute [None]
  - Nephropathy [None]
  - Anaemia [None]
  - Coronary artery occlusion [None]
